FAERS Safety Report 24560993 (Version 1)
Quarter: 2024Q4

REPORT INFORMATION
  Report Type: Spontaneous
  Country: SE (occurrence: SE)
  Receive Date: 20241029
  Receipt Date: 20241029
  Transmission Date: 20250114
  Serious: Yes (Hospitalization, Other)
  Sender: BAYER HEALTHCARE PHARMACEUTICALS INC.
  Company Number: None

PATIENT
  Age: 34 Year
  Sex: Female

DRUGS (4)
  1. MIRENA [Suspect]
     Active Substance: LEVONORGESTREL
     Indication: Heavy menstrual bleeding
     Dosage: 20?G/DAY
     Route: 015
     Dates: start: 20240911, end: 20240913
  2. Dimethyl fumarate neuraxpharm [Concomitant]
     Dosage: 120 MG, BID
     Route: 048
     Dates: start: 20220905
  3. Dimethyl fumarate neuraxpharm [Concomitant]
     Dosage: 240 MG, BID
     Route: 048
     Dates: start: 2022
  4. TECFIDERA [Concomitant]
     Active Substance: DIMETHYL FUMARATE
     Dosage: 240 MG, BID
     Route: 048
     Dates: start: 20190219

REACTIONS (6)
  - Tubo-ovarian abscess [Recovering/Resolving]
  - Salpingo-oophorectomy unilateral [Unknown]
  - Peritonitis [Unknown]
  - Decreased appetite [Unknown]
  - Headache [Unknown]
  - Dizziness [Unknown]

NARRATIVE: CASE EVENT DATE: 20240901
